FAERS Safety Report 6042738-9 (Version None)
Quarter: 2009Q1

REPORT INFORMATION
  Report Type: 
  Country: None (occurrence: None)
  Receive Date: 20090119
  Receipt Date: 20090106
  Transmission Date: 20090719
  Serious: Yes (Other)
  Sender: FDA-Public Use
  Company Number: DE-ELI_LILLY_AND_COMPANY-DE200812004858

PATIENT
  Sex: Male
  Weight: 46 kg

DRUGS (8)
  1. STRATTERA [Suspect]
     Indication: ATTENTION DEFICIT/HYPERACTIVITY DISORDER
     Dosage: 10 MG, DAILY (1/D)
     Route: 048
     Dates: start: 20080515
  2. STRATTERA [Suspect]
     Dosage: 18 MG, DAILY (1/D)
     Route: 048
     Dates: start: 20080101
  3. STRATTERA [Suspect]
     Dosage: 25 MG, DAILY (1/D)
     Route: 048
     Dates: start: 20080101
  4. STRATTERA [Suspect]
     Dosage: 18 MG, DAILY (1/D)
     Route: 048
     Dates: start: 20080101
  5. STRATTERA [Suspect]
     Dosage: 10 MG, DAILY (1/D)
     Route: 048
     Dates: start: 20080101, end: 20081212
  6. MEDIKINET [Concomitant]
     Indication: ATTENTION DEFICIT/HYPERACTIVITY DISORDER
  7. CONCERTA [Concomitant]
     Indication: ATTENTION DEFICIT/HYPERACTIVITY DISORDER
     Dosage: 36 MG, DAILY (1/D)
     Dates: start: 20080828
  8. CONCERTA [Concomitant]
     Dosage: 18 MG, DAILY (1/D)
     Dates: start: 20080901

REACTIONS (6)
  - DEPRESSION [None]
  - FACIAL BONES FRACTURE [None]
  - FLIGHT OF IDEAS [None]
  - GENERAL PHYSICAL HEALTH DETERIORATION [None]
  - NEURODERMATITIS [None]
  - SLEEP DISORDER [None]
